FAERS Safety Report 9478864 (Version 1)
Quarter: 2013Q3

REPORT INFORMATION
  Report Type: Spontaneous
  Country: US (occurrence: US)
  Receive Date: 20130827
  Receipt Date: 20130827
  Transmission Date: 20140515
  Serious: Yes (Other)
  Sender: FDA-Public Use
  Company Number: US-ASTRAZENECA-2013SE64131

PATIENT
  Sex: 0
  Weight: 63.5 kg

DRUGS (3)
  1. NEXIUM [Suspect]
     Route: 048
  2. VALSARTAN [Concomitant]
     Indication: HYPERTENSION
  3. DILTIAZEM [Concomitant]
     Indication: HYPERTENSION

REACTIONS (3)
  - Hiatus hernia [Unknown]
  - Flatulence [Unknown]
  - Dysphagia [Unknown]
